FAERS Safety Report 10621261 (Version 2)
Quarter: 2016Q1

REPORT INFORMATION
  Report Type: Spontaneous
  Country: GB (occurrence: GB)
  Receive Date: 20141203
  Receipt Date: 20160308
  Transmission Date: 20160525
  Serious: Yes (Death, Hospitalization, Disabling, Other)
  Sender: FDA-Public Use
  Company Number: GB-ACCORD-027347

PATIENT
  Age: 72 Year
  Sex: Female
  Weight: 66 kg

DRUGS (4)
  1. ANASTROZOLE. [Concomitant]
     Active Substance: ANASTROZOLE
  2. DONEPEZIL/DONEPEZIL HYDROCHLORIDE [Suspect]
     Active Substance: DONEPEZIL HYDROCHLORIDE
     Indication: DEMENTIA ALZHEIMER^S TYPE
     Route: 048
     Dates: start: 20140822, end: 20141003
  3. DIGOXIN. [Suspect]
     Active Substance: DIGOXIN
     Indication: ATRIAL FIBRILLATION
  4. IRON [Concomitant]
     Active Substance: IRON

REACTIONS (9)
  - Hepatitis acute [Unknown]
  - Toxicity to various agents [Unknown]
  - Sepsis [Not Recovered/Not Resolved]
  - Acute hepatic failure [Fatal]
  - Multiple organ dysfunction syndrome [Unknown]
  - Atrial fibrillation [Unknown]
  - Hepatic encephalopathy [Unknown]
  - Urinary tract infection [Unknown]
  - Metabolic acidosis [Unknown]

NARRATIVE: CASE EVENT DATE: 20140903
